FAERS Safety Report 4374070-3 (Version None)
Quarter: 2004Q2

REPORT INFORMATION
  Report Type: 
  Country: None (occurrence: None)
  Receive Date: 20040602
  Receipt Date: 20040127
  Transmission Date: 20050107
  Serious: Yes (Hospitalization)
  Sender: FDA-Public Use
  Company Number: 1516

PATIENT
  Age: 90 Year
  Sex: Female

DRUGS (2)
  1. AVINZA [Suspect]
     Indication: ARTHRITIS
     Dosage: 30 MG QD PO
     Route: 048
     Dates: start: 20040101, end: 20040101
  2. AVINZA [Suspect]
     Indication: NEUROPATHY
     Dosage: 30 MG QD PO
     Route: 048
     Dates: start: 20040101, end: 20040101

REACTIONS (2)
  - DYSPHAGIA [None]
  - ILEUS [None]
